FAERS Safety Report 6983608-9 (Version None)
Quarter: 2010Q3

REPORT INFORMATION
  Report Type: 
  Country: None (occurrence: None)
  Receive Date: 20100914
  Receipt Date: 20080911
  Transmission Date: 20110219
  Serious: No
  Sender: FDA-Public Use
  Company Number: US-WYE-H05960008

PATIENT
  Age: 78 Year
  Sex: Male
  Weight: 70.37 kg

DRUGS (2)
  1. ADVIL LIQUI-GELS [Suspect]
     Indication: SCIATICA
     Route: 048
     Dates: start: 20080907
  2. METFORMIN HCL [Concomitant]

REACTIONS (1)
  - FAECES DISCOLOURED [None]
